FAERS Safety Report 8840646 (Version 1)
Quarter: 2012Q4

REPORT INFORMATION
  Report Type: 
  Country: US (occurrence: US)
  Receive Date: 20121015
  Receipt Date: 20121015
  Transmission Date: 20130627
  Serious: Yes (Hospitalization)
  Sender: FDA-Public Use
  Company Number: US-PFIZER INC-2012253517

PATIENT
  Age: 55 Year
  Sex: Female

DRUGS (5)
  1. ATENOLOL [Suspect]
     Indication: BLOOD PRESSURE
     Dosage: 50 mg, Daily
     Route: 048
  2. SEROQUEL XR [Suspect]
     Indication: BIPOLAR DISORDER
     Dosage: 50  mg, Daily
     Route: 048
     Dates: start: 201207
  3. SEROQUEL XR [Suspect]
     Dosage: 100 mg, Daily
     Route: 048
     Dates: start: 201209
  4. PROZAC [Concomitant]
     Indication: DEPRESSION
     Dosage: 60 mg, Daily
     Route: 048
  5. KLONOPIN [Concomitant]
     Indication: PANIC ATTACK
     Dosage: 5 mg, 2x/day
     Route: 048

REACTIONS (1)
  - Pneumonia [Recovered/Resolved]
